FAERS Safety Report 13003279 (Version 1)
Quarter: 2016Q4

REPORT INFORMATION
  Report Type: Spontaneous
  Country: DE (occurrence: DE)
  Receive Date: 20161206
  Receipt Date: 20161206
  Transmission Date: 20170207
  Serious: Yes (Death, Hospitalization, Other)
  Sender: FDA-Public Use
  Company Number: DE-BAYER-2016-230174

PATIENT
  Age: 43 Year
  Sex: Female

DRUGS (1)
  1. ASPIRIN. [Suspect]
     Active Substance: ASPIRIN
     Indication: SUICIDE ATTEMPT
     Dosage: APPROXIMATELY 130G, ONCE

REACTIONS (13)
  - Blood creatine phosphokinase increased [Unknown]
  - Coma [None]
  - Hyperphosphataemia [Unknown]
  - Suicide attempt [None]
  - Cardiac arrest [Fatal]
  - Blood lactate dehydrogenase increased [Unknown]
  - Hyperkalaemia [Unknown]
  - Arterial spasm [Fatal]
  - Overdose [None]
  - Hypocalcaemia [Fatal]
  - Toxicity to various agents [Fatal]
  - Tetany [Fatal]
  - Leukocytosis [Unknown]
